FAERS Safety Report 7827719-4 (Version None)
Quarter: 2011Q4

REPORT INFORMATION
  Report Type: 
  Country: None (occurrence: None)
  Receive Date: 20111020
  Receipt Date: 20111012
  Transmission Date: 20120403
  Serious: Yes (Hospitalization, Other)
  Sender: FDA-Public Use
  Company Number: US-PFIZER INC-2011202643

PATIENT
  Sex: Male

DRUGS (1)
  1. XYNTHA [Suspect]
     Indication: FACTOR VIII DEFICIENCY
     Dosage: 250 IU, WEEKLY
     Route: 042
     Dates: start: 20110516, end: 20110619

REACTIONS (1)
  - FACTOR VIII INHIBITION [None]
